FAERS Safety Report 19205819 (Version 1)
Quarter: 2021Q2

REPORT INFORMATION
  Report Type: Spontaneous
  Country: US (occurrence: US)
  Receive Date: 20210503
  Receipt Date: 20210503
  Transmission Date: 20210717
  Serious: Yes (Disabling)
  Sender: FDA-Public Use
  Company Number: None

PATIENT
  Age: 30 Year
  Sex: Female

DRUGS (1)
  1. MIRENA [Suspect]
     Active Substance: LEVONORGESTREL

REACTIONS (11)
  - Weight decreased [None]
  - Hypophagia [None]
  - Panic attack [None]
  - Complication of device removal [None]
  - Photosensitivity reaction [None]
  - Ear discomfort [None]
  - Anxiety [None]
  - Tremor [None]
  - Depressed mood [None]
  - Vision blurred [None]
  - Tinnitus [None]

NARRATIVE: CASE EVENT DATE: 20210502
